FAERS Safety Report 9373841 (Version 1)
Quarter: 2013Q2

REPORT INFORMATION
  Report Type: Spontaneous
  Country: US (occurrence: US)
  Receive Date: 20130628
  Receipt Date: 20130628
  Transmission Date: 20140414
  Serious: Yes (Death)
  Sender: FDA-Public Use
  Company Number: US-MERCK-1306USA011574

PATIENT
  Sex: Female

DRUGS (1)
  1. NASONEX [Suspect]
     Route: 045

REACTIONS (2)
  - Death [Fatal]
  - Rhinorrhoea [Unknown]
